FAERS Safety Report 12110688 (Version 1)
Quarter: 2016Q1

REPORT INFORMATION
  Report Type: Spontaneous
  Country: US (occurrence: US)
  Receive Date: 20160224
  Receipt Date: 20160224
  Transmission Date: 20160526
  Serious: No
  Sender: FDA-Public Use
  Company Number: US-JAZZ-2014-US-006320

PATIENT
  Sex: Male

DRUGS (5)
  1. PRIALT [Suspect]
     Active Substance: ZICONOTIDE ACETATE
     Indication: PAIN
     Dosage: UNK ?G, QH
     Route: 037
  2. PRIALT [Suspect]
     Active Substance: ZICONOTIDE ACETATE
     Indication: POST LAMINECTOMY SYNDROME
  3. PRIALT [Suspect]
     Active Substance: ZICONOTIDE ACETATE
     Indication: INTERVERTEBRAL DISC DEGENERATION
  4. PRIALT [Suspect]
     Active Substance: ZICONOTIDE ACETATE
     Indication: LUMBAR RADICULOPATHY
  5. PRIALT [Suspect]
     Active Substance: ZICONOTIDE ACETATE
     Indication: SURGERY

REACTIONS (5)
  - Blister [Unknown]
  - Infection [Unknown]
  - Seroma [Unknown]
  - Hypersensitivity [Unknown]
  - Device issue [Unknown]

NARRATIVE: CASE EVENT DATE: 2011
